FAERS Safety Report 8690775 (Version 2)
Quarter: 2013Q4

REPORT INFORMATION
  Report Type: Spontaneous
  Country: US (occurrence: US)
  Receive Date: 20120728
  Receipt Date: 20131101
  Transmission Date: 20140711
  Serious: No
  Sender: FDA-Public Use
  Company Number: US-009507513-1207USA008769

PATIENT
  Age: 2 Year
  Sex: Female
  Weight: 12.7 kg

DRUGS (2)
  1. CLARITIN ORAL SOLUTION [Suspect]
     Indication: SEASONAL ALLERGY
     Dosage: 5 MG, QD
     Route: 048
  2. CLARITIN ORAL SOLUTION [Suspect]
     Dosage: 10 MG, ONCE
     Route: 048

REACTIONS (2)
  - Cough [Not Recovered/Not Resolved]
  - Accidental overdose [Recovered/Resolved]
